FAERS Safety Report 8790584 (Version 1)
Quarter: 2012Q4

REPORT INFORMATION
  Report Type: Spontaneous
  Country: US (occurrence: None)
  Receive Date: 20120912
  Receipt Date: 20120912
  Transmission Date: 20130627
  Serious: Yes (Hospitalization, Other)
  Sender: FDA-Public Use
  Company Number: None

PATIENT
  Age: 79 Year
  Sex: Male
  Weight: 60.5 kg

DRUGS (1)
  1. CLOPIDOGREL [Suspect]
     Indication: CORONARY STENT PLACEMENT
     Route: 048
     Dates: start: 20041008, end: 20120222

REACTIONS (5)
  - Gastric haemorrhage [None]
  - Arteriovenous malformation [None]
  - Lower gastrointestinal haemorrhage [None]
  - Haemoglobin decreased [None]
  - Diverticulum intestinal haemorrhagic [None]
